FAERS Safety Report 5792116-2 (Version None)
Quarter: 2008Q2

REPORT INFORMATION
  Report Type: 
  Country: None (occurrence: None)
  Receive Date: 20080626
  Receipt Date: 20080320
  Transmission Date: 20081010
  Serious: No
  Sender: FDA-Public Use
  Company Number: US-ASTRAZENECA-2008UW05748

PATIENT
  Age: 15 Year
  Sex: Male

DRUGS (4)
  1. PULMICORT FLEXHALER [Suspect]
     Indication: ASTHMA
     Dosage: 180 MCG, ONE PUFF IN AM AND ONE PUFF IN PM
     Route: 055
     Dates: end: 20080320
  2. NASACORT [Concomitant]
  3. ALLEGRA [Concomitant]
  4. ALBUTEROL [Concomitant]

REACTIONS (1)
  - PAINFUL RESPIRATION [None]
